FAERS Safety Report 9189571 (Version 2)
Quarter: 2014Q1

REPORT INFORMATION
  Report Type: Spontaneous
  Country: US (occurrence: US)
  Receive Date: 20130326
  Receipt Date: 20140212
  Transmission Date: 20141002
  Serious: Yes (Hospitalization, Other)
  Sender: FDA-Public Use
  Company Number: US-SANOFI-AVENTIS-2013SA029965

PATIENT
  Age: 73 Year
  Sex: Female
  Weight: 67.58 kg

DRUGS (28)
  1. PLAVIX [Suspect]
     Indication: CEREBROVASCULAR ACCIDENT
     Dates: start: 200808, end: 201305
  2. PLAVIX [Suspect]
     Indication: MYOCARDIAL INFARCTION
     Dates: start: 200808, end: 201305
  3. PLAVIX [Suspect]
     Indication: STENT PLACEMENT
     Dates: start: 200808, end: 201305
  4. PRILOSEC [Concomitant]
     Indication: ULCER HAEMORRHAGE
     Route: 065
  5. ALL OTHER THERAPEUTIC PRODUCTS [Concomitant]
  6. BYSTOLIC [Concomitant]
     Indication: BLOOD PRESSURE
     Route: 065
  7. PRAVASTATIN [Concomitant]
     Indication: BLOOD CHOLESTEROL
     Route: 065
  8. ASPIRIN [Concomitant]
     Route: 065
  9. TUMS [Concomitant]
     Dosage: FRQUENCY:-2 DAY MID AFTERNOON
     Route: 065
  10. DOCUSATE SODIUM [Concomitant]
     Route: 065
  11. MIRALAX [Concomitant]
     Route: 065
  12. TYLENOL [Concomitant]
     Indication: PAIN
  13. TRAMADOL [Concomitant]
     Indication: PAIN
     Dosage: FREQUENCY:- EVERY 4-6 HRS FOR SEVERE PAIN
     Route: 065
  14. TRAMADOL [Concomitant]
     Indication: ARTHRITIS
     Dosage: FREQUENCY:- EVERY 4-6 HRS FOR SEVERE PAIN
     Route: 065
  15. ZOLPIDEM TARTRATE [Concomitant]
     Route: 065
  16. BENADRYL [Concomitant]
     Route: 065
  17. HYDROCHLOROTHIAZIDE [Concomitant]
     Indication: BLOOD PRESSURE
     Route: 065
  18. NITROGLYCERIN ^SLOVAKOFARMA^ [Concomitant]
     Indication: ANGINA PECTORIS
     Route: 065
  19. CELEBREX [Concomitant]
     Indication: NECK PAIN
     Route: 065
  20. CELEBREX [Concomitant]
     Indication: ARTHRALGIA
     Route: 065
  21. CELEBREX [Concomitant]
     Indication: ARTHRALGIA
     Route: 065
  22. CELEBREX [Concomitant]
     Indication: MUSCULOSKELETAL PAIN
     Route: 065
  23. CARISOPRODOL [Concomitant]
     Route: 065
  24. CHLORDIAZEPOXIDE HYDROCHLORIDE/CLIDINIUM BROMIDE [Concomitant]
     Indication: IRRITABLE BOWEL SYNDROME
     Route: 065
  25. CHLORDIAZEPOXIDE HYDROCHLORIDE/CLIDINIUM BROMIDE [Concomitant]
     Indication: ABDOMINAL PAIN UPPER
     Route: 065
  26. DICYCLOMINE [Concomitant]
     Indication: ABDOMINAL PAIN UPPER
     Route: 065
  27. DICYCLOMINE [Concomitant]
     Indication: PAIN
     Route: 065
  28. CLOBETASOL PROPIONATE [Concomitant]
     Indication: RASH
     Route: 065

REACTIONS (4)
  - Parathyroid disorder [Unknown]
  - Insomnia [Recovered/Resolved]
  - Ulcer haemorrhage [Not Recovered/Not Resolved]
  - Cluster headache [Unknown]
